FAERS Safety Report 10382390 (Version 2)
Quarter: 2014Q3

REPORT INFORMATION
  Report Type: Spontaneous
  Country: US (occurrence: None)
  Receive Date: 20140811
  Receipt Date: 20140909
  Transmission Date: 20150326
  Serious: Yes (Hospitalization)
  Sender: FDA-Public Use
  Company Number: US-001135

PATIENT
  Age: 48 Year
  Sex: Male
  Weight: 60 kg

DRUGS (19)
  1. CHOLECALCIFEROL [Concomitant]
     Active Substance: CHOLECALCIFEROL
  2. MAGNESIUM SULFATE [Concomitant]
     Active Substance: MAGNESIUM SULFATE
  3. HYDROMORPHONE [Concomitant]
     Active Substance: HYDROMORPHONE
  4. LACTATED RINGERS [Concomitant]
     Active Substance: CALCIUM CHLORIDE\POTASSIUM CHLORIDE\SODIUM CHLORIDE\SODIUM LACTATE
  5. MULTIVITAMINS AND MINERALS [Concomitant]
  6. NYSTATIN. [Concomitant]
     Active Substance: NYSTATIN
  7. PEG-3350 AND ELECTROLYTES [Concomitant]
     Active Substance: POLYETHYLENE GLYCOL 3350\POTASSIUM CHLORIDE\SODIUM BICARBONATE\SODIUM CHLORIDE\SODIUM SULFATE\SODIUM SULFATE ANHYDROUS
  8. STOMAHESIVE [Concomitant]
  9. GATTEX [Suspect]
     Active Substance: TEDUGLUTIDE\WATER
     Indication: SHORT-BOWEL SYNDROME
     Route: 058
     Dates: start: 20131202, end: 20140725
  10. SOLUTION FOR PARENTERAL NUTRITION [Concomitant]
  11. DAPTOMYCIN [Concomitant]
     Active Substance: DAPTOMYCIN
  12. CYANOCOBALMIN [Concomitant]
  13. ENOXAPARIN [Concomitant]
     Active Substance: ENOXAPARIN
  14. PANTOPRAZOLE [Concomitant]
     Active Substance: PANTOPRAZOLE SODIUM
  15. RIFAMPIN. [Concomitant]
     Active Substance: RIFAMPIN
  16. BUDESONIDE. [Concomitant]
     Active Substance: BUDESONIDE
  17. PROMETHAZONE [Concomitant]
  18. FENTANYL. [Concomitant]
     Active Substance: FENTANYL
  19. ACETAMINOPHEN. [Concomitant]
     Active Substance: ACETAMINOPHEN

REACTIONS (8)
  - Infection [None]
  - Renal failure chronic [None]
  - Device related infection [None]
  - Staphylococcal sepsis [None]
  - Pancreatitis acute [None]
  - Drug dose omission [None]
  - Ileus [None]
  - Sepsis [None]

NARRATIVE: CASE EVENT DATE: 201407
